FAERS Safety Report 8048941-0 (Version None)
Quarter: 2012Q1

REPORT INFORMATION
  Report Type: 
  Country: None (occurrence: None)
  Receive Date: 20120110
  Receipt Date: 20120105
  Transmission Date: 20120608
  Serious: Yes (Life-Threatening)
  Sender: FDA-Public Use
  Company Number: GER/UKI/12/0022570

PATIENT
  Age: 87 Year
  Sex: Male

DRUGS (7)
  1. ALENDRONIC ACID (ALENDRONIC ACID) [Suspect]
     Indication: PROPHYLAXIS
     Dosage: 70 MG, ORAL
     Route: 048
     Dates: start: 20100901, end: 20111229
  2. FOLIC ACID [Concomitant]
  3. CALCICHEW D3 (LEKOVIT CA) [Concomitant]
  4. ASPIRIN [Concomitant]
  5. LANSOPRAZOLE [Concomitant]
  6. PREDNISOLONE [Concomitant]
  7. FLUOXETINE HYDROCHLORIDE [Concomitant]

REACTIONS (2)
  - OSTEONECROSIS OF JAW [None]
  - ARTERIAL HAEMORRHAGE [None]
